FAERS Safety Report 8600765 (Version 8)
Quarter: 2012Q4

REPORT INFORMATION
  Report Type: Report from Study
  Country: FI (occurrence: FI)
  Receive Date: 20120606
  Receipt Date: 20121107
  Transmission Date: 20130627
  Serious: Yes (Hospitalization)
  Sender: FDA-Public Use
  Company Number: FI-SANOFI-AVENTIS-2012SA038727

PATIENT
  Age: 80 Year
  Sex: Male

DRUGS (12)
  1. DOCETAXEL [Suspect]
     Indication: PROSTATE CANCER METASTATIC
     Route: 042
     Dates: start: 20111110, end: 20111110
  2. DOCETAXEL [Suspect]
     Indication: PROSTATE CANCER METASTATIC
     Route: 042
     Dates: start: 20120516, end: 20120516
  3. PREDNISONE [Suspect]
     Indication: PROSTATE CANCER METASTATIC
     Route: 048
     Dates: start: 20111110, end: 20120527
  4. XALATAN [Concomitant]
     Indication: DRUG THERAPY
     Route: 047
  5. METFOREM [Concomitant]
     Indication: DRUG THERAPY
     Route: 048
  6. PRIMASPAN [Concomitant]
     Indication: DRUG THERAPY
     Route: 048
  7. BISOPROLOL [Concomitant]
     Indication: DRUG THERAPY
     Route: 048
  8. LOSARTAN POTASSIUM [Concomitant]
     Indication: DRUG THERAPY
     Route: 048
  9. AMLODIPINE [Concomitant]
     Indication: DRUG THERAPY
     Route: 048
  10. ZOLT [Concomitant]
     Indication: DRUG THERAPY
     Route: 048
  11. ZOLADEX [Concomitant]
     Indication: PROPHYLAXIS
     Route: 058
     Dates: start: 20050825
  12. OFTAN [Concomitant]
     Indication: DRUG THERAPY
     Route: 047
     Dates: start: 20120412

REACTIONS (1)
  - Cholecystitis acute [Recovered/Resolved]
